FAERS Safety Report 4507898-7 (Version None)
Quarter: 2004Q4

REPORT INFORMATION
  Report Type: 
  Country: None (occurrence: None)
  Receive Date: 20041118
  Receipt Date: 20041104
  Transmission Date: 20050328
  Serious: No
  Sender: FDA-Public Use
  Company Number: 2004UW22903

PATIENT
  Sex: Female
  Weight: 74.8435 kg

DRUGS (7)
  1. ARIMIDEX [Suspect]
     Indication: BREAST CANCER
     Dosage: 1 MG QD PO
     Route: 048
     Dates: start: 19981106, end: 20031103
  2. NOLVADEX [Suspect]
     Indication: BREAST CANCER
     Dosage: 20 MG QD PO
     Route: 048
     Dates: start: 19981106, end: 20030430
  3. ZOLOFT [Concomitant]
  4. LORAZEPAM [Concomitant]
  5. LOSEC [Concomitant]
  6. ASPIRIN [Concomitant]
  7. LOTENSIN [Concomitant]

REACTIONS (3)
  - CARPAL TUNNEL SYNDROME [None]
  - NERVE INJURY [None]
  - PAIN IN EXTREMITY [None]
